FAERS Safety Report 8043355-1 (Version None)
Quarter: 2012Q1

REPORT INFORMATION
  Report Type: 
  Country: None (occurrence: None)
  Receive Date: 20120112
  Receipt Date: 20120109
  Transmission Date: 20120608
  Serious: Yes (Other)
  Sender: FDA-Public Use
  Company Number: US-ABBOTT-11P-163-0734621-00

PATIENT
  Sex: Male
  Weight: 95.34 kg

DRUGS (12)
  1. PREDNISONE TAB [Concomitant]
     Indication: CROHN'S DISEASE
  2. SULAR [Concomitant]
     Indication: HYPERTENSION
  3. PURINETHOL [Concomitant]
     Indication: CROHN'S DISEASE
  4. HYDROCHLOROTHIAZIDE [Concomitant]
     Indication: HYPERTENSION
  5. HUMIRA [Suspect]
     Indication: CROHN'S DISEASE
     Dosage: 40 MG QOW
     Dates: start: 20090101
  6. LOMOTIL [Concomitant]
     Indication: DIARRHOEA
     Dosage: DAILY DOSE: 8 PILLS
  7. CODEINE SULFATE [Concomitant]
     Indication: DIARRHOEA
  8. TOPROL-XL [Concomitant]
     Indication: HYPERTENSION
  9. CELEBREX [Concomitant]
     Indication: NECK PAIN
  10. VITAMIN-MINERAL COMPOUND TAB [Concomitant]
     Indication: MACULAR DEGENERATION
  11. CENTRUM [Concomitant]
     Indication: VITAMIN SUPPLEMENTATION
  12. CELEBREX [Concomitant]
     Indication: BACK PAIN

REACTIONS (11)
  - HEART RATE INCREASED [None]
  - DYSPHONIA [None]
  - LARYNGEAL OEDEMA [None]
  - MELANOCYTIC NAEVUS [None]
  - NASAL CONGESTION [None]
  - HERPES ZOSTER [None]
  - SCAB [None]
  - EYE PAIN [None]
  - ORAL PAIN [None]
  - PARANOIA [None]
  - SKIN PAPILLOMA [None]
